FAERS Safety Report 17807276 (Version 1)
Quarter: 2020Q2

REPORT INFORMATION
  Report Type: Spontaneous
  Country: US (occurrence: US)
  Receive Date: 20200520
  Receipt Date: 20200520
  Transmission Date: 20200714
  Serious: Yes (Other)
  Sender: FDA-Public Use
  Company Number: None

PATIENT
  Age: 68 Year
  Sex: Male
  Weight: 76.2 kg

DRUGS (1)
  1. AMPICILLIN/ SULBACTAN (AMPICILLIN NA/SULBACTAM NA 3GM/VIL INJ [Suspect]
     Active Substance: AMPICILLIN SODIUM\SULBACTAM SODIUM
     Indication: UPPER RESPIRATORY TRACT INFECTION
     Dosage: ?          OTHER FREQUENCY:QID ;?
     Route: 042
     Dates: start: 20200305, end: 20200305

REACTIONS (6)
  - Tachypnoea [None]
  - Hypotension [None]
  - Urticaria [None]
  - Dyspnoea [None]
  - Pruritus [None]
  - Tachycardia [None]

NARRATIVE: CASE EVENT DATE: 20200305
